FAERS Safety Report 13327015 (Version 2)
Quarter: 2017Q1

REPORT INFORMATION
  Report Type: Report from Study
  Country: US (occurrence: US)
  Receive Date: 20170313
  Receipt Date: 20170316
  Transmission Date: 20170428
  Serious: Yes (Hospitalization, Other)
  Sender: FDA-Public Use
  Company Number: US-UCBSA-2017009122

PATIENT
  Sex: Female

DRUGS (1)
  1. LEVETIRACETAM. [Suspect]
     Active Substance: LEVETIRACETAM
     Indication: PARTIAL SEIZURES
     Dosage: UNK

REACTIONS (6)
  - Fall [Unknown]
  - Confusional state [Unknown]
  - Escherichia infection [Unknown]
  - Clostridium difficile infection [Unknown]
  - Weight decreased [Unknown]
  - Balance disorder [Unknown]
